FAERS Safety Report 18119515 (Version 1)
Quarter: 2020Q3

REPORT INFORMATION
  Report Type: Report from Study
  Country: CA (occurrence: CA)
  Receive Date: 20200806
  Receipt Date: 20200806
  Transmission Date: 20201103
  Serious: Yes (Other)
  Sender: FDA-Public Use
  Company Number: CA-PFIZER INC-2020295947

PATIENT
  Sex: Male

DRUGS (11)
  1. GABAPENTIN. [Suspect]
     Active Substance: GABAPENTIN
     Indication: TINNITUS
     Dosage: UNK
     Route: 065
  2. VITAMIN B12 [Concomitant]
     Active Substance: CYANOCOBALAMIN
     Indication: VITAMIN B12 DEFICIENCY
     Route: 065
  3. MAVENCLAD [Suspect]
     Active Substance: CLADRIBINE
     Indication: RELAPSING-REMITTING MULTIPLE SCLEROSIS
     Dosage: UNK
     Route: 048
  4. LUVOX [Concomitant]
     Active Substance: FLUVOXAMINE MALEATE
     Dosage: 150 MG, 1X/DAY
     Route: 065
  5. WELLBUTRIN [Concomitant]
     Active Substance: BUPROPION HYDROCHLORIDE
     Indication: DEPRESSION
     Dosage: 150 MG, 1X/DAY
     Route: 065
  6. MAVENCLAD [Suspect]
     Active Substance: CLADRIBINE
     Dosage: UNK
     Route: 048
  7. VALSARTAN. [Concomitant]
     Active Substance: VALSARTAN
     Dosage: 160 MG, 1X/DAY
     Route: 048
  8. OMNARIS [Concomitant]
     Active Substance: CICLESONIDE
     Indication: TINNITUS
     Route: 065
  9. HYDROCHLOROTHIAZIDE. [Concomitant]
     Active Substance: HYDROCHLOROTHIAZIDE
     Dosage: 25 MG, 1X/DAY
     Route: 048
  10. NOVO?FLUVOXAMINE [Concomitant]
     Indication: DEPRESSION
     Dosage: 1.5 DF, 1X/DAY
     Route: 065
  11. VITAMIN D [VITAMIN D NOS] [Concomitant]
     Active Substance: VITAMIN D NOS
     Dosage: 1000 IU, 1X/DAY
     Route: 065

REACTIONS (10)
  - Depression [Not Recovered/Not Resolved]
  - Lymphopenia [Not Recovered/Not Resolved]
  - Spleen disorder [Not Recovered/Not Resolved]
  - White blood cell count decreased [Not Recovered/Not Resolved]
  - Fatigue [Not Recovered/Not Resolved]
  - Gastrointestinal wall thickening [Not Recovered/Not Resolved]
  - Alopecia [Not Recovered/Not Resolved]
  - Neutrophil count decreased [Not Recovered/Not Resolved]
  - Renal cyst [Not Recovered/Not Resolved]
  - Haemangioma of spleen [Not Recovered/Not Resolved]
